FAERS Safety Report 22039576 (Version 1)
Quarter: 2023Q1

REPORT INFORMATION
  Report Type: Spontaneous
  Country: US (occurrence: US)
  Receive Date: 20230227
  Receipt Date: 20230227
  Transmission Date: 20230417
  Serious: No
  Sender: FDA-Public Use
  Company Number: US-SA-SAC20230227000281

PATIENT
  Age: 67 Year
  Sex: Male

DRUGS (15)
  1. DUPIXENT [Suspect]
     Active Substance: DUPILUMAB
     Indication: Asthma
     Dosage: UNK
     Dates: end: 20230120
  2. ALBUTEROL SULFATE [Concomitant]
     Active Substance: ALBUTEROL SULFATE
  3. ALCOHOL PREP PAD [Concomitant]
     Active Substance: ISOPROPYL ALCOHOL
  4. BIOTIN [Concomitant]
     Active Substance: BIOTIN
  5. DOXYCYCLINE [Concomitant]
     Active Substance: DOXYCYCLINE
  6. FAMOTIDINE [Concomitant]
     Active Substance: FAMOTIDINE
  7. GUAIFENESIN [Concomitant]
     Active Substance: GUAIFENESIN
  8. LIDOCAINE [Concomitant]
     Active Substance: LIDOCAINE
  9. NASAL RELIEF [Concomitant]
     Active Substance: OXYMETAZOLINE HYDROCHLORIDE
  10. TRELEGY ELLIPTA [Concomitant]
     Active Substance: FLUTICASONE FUROATE\UMECLIDINIUM BROMIDE\VILANTEROL TRIFENATATE
  11. VITAMIN B12 [Concomitant]
     Active Substance: CYANOCOBALAMIN
  12. VITAMIN C [Concomitant]
     Active Substance: ASCORBIC ACID
  13. GLUCERNA [Concomitant]
     Active Substance: AMINO ACIDS\DEXTROSE\ELECTROLYTES NOS\SOYBEAN OIL\VITAMINS
  14. SENSODYNE [POTASSIUM NITRATE;SODIUM FLUORIDE] [Concomitant]
  15. VITAMIN E [Concomitant]
     Active Substance: .ALPHA.-TOCOPHEROL

REACTIONS (1)
  - Respiration abnormal [Unknown]

NARRATIVE: CASE EVENT DATE: 20230101
